FAERS Safety Report 4349383-1 (Version None)
Quarter: 2004Q2

REPORT INFORMATION
  Report Type: 
  Country: None (occurrence: None)
  Receive Date: 20040428
  Receipt Date: 20040416
  Transmission Date: 20050107
  Serious: Yes (Other)
  Sender: FDA-Public Use
  Company Number: CH-BRISTOL-MYERS SQUIBB COMPANY-12572434

PATIENT
  Age: 41 Year
  Sex: Female

DRUGS (7)
  1. ENDOXAN [Suspect]
     Indication: BREAST CANCER
     Dosage: 600 MG/M^2
     Route: 042
     Dates: start: 20040223, end: 20040223
  2. DOXORUBICIN HCL [Suspect]
     Indication: BREAST CANCER
     Dosage: 60 MG/M^2
     Route: 042
     Dates: start: 20040223, end: 20040223
  3. NAVOBAN [Concomitant]
     Indication: PREMEDICATION
     Route: 042
     Dates: start: 20040223, end: 20040316
  4. MEPHAMESON [Concomitant]
     Indication: PREMEDICATION
     Route: 042
     Dates: start: 20040223, end: 20040316
  5. XANAX [Concomitant]
     Route: 048
  6. ULCOGANT [Concomitant]
     Route: 048
  7. SUPRADYN [Concomitant]
     Route: 048

REACTIONS (3)
  - CHEST PAIN [None]
  - SKIN DISCOLOURATION [None]
  - VASOSPASM [None]
